FAERS Safety Report 16981038 (Version 1)
Quarter: 2019Q4

REPORT INFORMATION
  Report Type: Spontaneous
  Country: US (occurrence: US)
  Receive Date: 20191031
  Receipt Date: 20191031
  Transmission Date: 20200122
  Serious: No
  Sender: FDA-Public Use
  Company Number: US-TEVA-2019-US-1130470

PATIENT
  Sex: Female

DRUGS (1)
  1. DESVENLAFAXINE SODIUM [Suspect]
     Active Substance: DESVENLAFAXINE
     Indication: DEPRESSION
     Route: 065
     Dates: start: 20191025

REACTIONS (1)
  - Depressed mood [Unknown]

NARRATIVE: CASE EVENT DATE: 20191025
